FAERS Safety Report 11750274 (Version 1)
Quarter: 2015Q4

REPORT INFORMATION
  Report Type: Report from Study
  Country: US (occurrence: US)
  Receive Date: 20151118
  Receipt Date: 20151118
  Transmission Date: 20160304
  Serious: Yes (Hospitalization)
  Sender: FDA-Public Use
  Company Number: US-JNJFOC-20151116525

PATIENT
  Sex: Male

DRUGS (22)
  1. CARVEDILOL. [Concomitant]
     Active Substance: CARVEDILOL
  2. LEVOTHYROXINE. [Concomitant]
     Active Substance: LEVOTHYROXINE
  3. OMEPRAZOLE. [Concomitant]
     Active Substance: OMEPRAZOLE
  4. TRYPSIN [Concomitant]
     Active Substance: TRYPSIN
  5. VITAMIN D [Concomitant]
     Active Substance: CHOLECALCIFEROL
  6. SPIRONOLACTONE. [Concomitant]
     Active Substance: SPIRONOLACTONE
  7. FUROSEMIDE. [Concomitant]
     Active Substance: FUROSEMIDE
  8. BALSAM [Concomitant]
  9. CASTOR OIL. [Concomitant]
     Active Substance: CASTOR OIL
  10. ASPIRIN. [Concomitant]
     Active Substance: ASPIRIN
  11. MAGNESIUM [Concomitant]
     Active Substance: MAGNESIUM
  12. PHOSLO [Concomitant]
     Active Substance: CALCIUM ACETATE
  13. IMBRUVICA [Suspect]
     Active Substance: IBRUTINIB
     Indication: LYMPHOMA
     Route: 048
     Dates: start: 201506, end: 2015
  14. ALLOPURINOL. [Concomitant]
     Active Substance: ALLOPURINOL
  15. ATORVASTATIN [Concomitant]
     Active Substance: ATORVASTATIN
  16. CALCIUM [Concomitant]
     Active Substance: CALCIUM
  17. CALCITRIOL. [Concomitant]
     Active Substance: CALCITRIOL
  18. ENTECAVIR. [Concomitant]
     Active Substance: ENTECAVIR
  19. HYDRALAZINE [Concomitant]
     Active Substance: HYDRALAZINE HYDROCHLORIDE
  20. VALGANCICLOVIR [Concomitant]
     Active Substance: VALGANCICLOVIR
  21. ISOSORBIDE MONONITRATE. [Concomitant]
     Active Substance: ISOSORBIDE MONONITRATE
  22. MESALAMINE. [Concomitant]
     Active Substance: MESALAMINE

REACTIONS (2)
  - Cerebrovascular accident [Unknown]
  - Off label use [Unknown]

NARRATIVE: CASE EVENT DATE: 2015
